FAERS Safety Report 9485637 (Version 2)
Quarter: 2013Q4

REPORT INFORMATION
  Report Type: Spontaneous
  Country: AU (occurrence: AU)
  Receive Date: 20130829
  Receipt Date: 20131209
  Transmission Date: 20140711
  Serious: Yes (Death, Hospitalization, Other)
  Sender: FDA-Public Use
  Company Number: AU-BRISTOL-MYERS SQUIBB COMPANY-19194158

PATIENT
  Age: 72 Year
  Sex: Male

DRUGS (5)
  1. YERVOY [Suspect]
     Dates: start: 201108, end: 201110
  2. LITHIUM [Suspect]
  3. ATORVASTATIN [Concomitant]
  4. PERINDOPRIL [Concomitant]
  5. GLICLAZIDE [Concomitant]

REACTIONS (8)
  - Death [Fatal]
  - Pneumonia [Unknown]
  - Hypophysitis [Unknown]
  - Renal failure acute [Unknown]
  - Toxicity to various agents [Unknown]
  - Rash [Unknown]
  - Arthralgia [Unknown]
  - Fatigue [Unknown]
